FAERS Safety Report 10077095 (Version 1)
Quarter: 2014Q2

REPORT INFORMATION
  Report Type: Spontaneous
  Country: CA (occurrence: None)
  Receive Date: 20140410
  Receipt Date: 20140410
  Transmission Date: 20141212
  Serious: Yes (Other)
  Sender: FDA-Public Use
  Company Number: UTC-046766

PATIENT
  Age: 15 Month
  Sex: Female
  Weight: 7.5 kg

DRUGS (3)
  1. REMODULIN [Suspect]
     Indication: PULMONARY HYPERTENSION
     Route: 041
     Dates: start: 20131221
  2. BOSENTAN [Suspect]
     Indication: PRODUCT USED FOR UNKNOWN INDICATION
  3. SILDENAFIL [Suspect]
     Indication: PRODUCT USED FOR UNKNOWN INDICATION

REACTIONS (10)
  - Pulmonary hypertension [None]
  - Oedema peripheral [None]
  - Diarrhoea [None]
  - Dizziness [None]
  - Nausea [None]
  - Vomiting [None]
  - Flushing [None]
  - Pruritus [None]
  - Dry skin [None]
  - Oxygen saturation decreased [None]
